FAERS Safety Report 12560512 (Version 1)
Quarter: 2016Q3

REPORT INFORMATION
  Report Type: Spontaneous
  Country: US (occurrence: None)
  Receive Date: 20160714
  Receipt Date: 20160714
  Transmission Date: 20161109
  Serious: Yes (Life-Threatening, Disabling, Other)
  Sender: FDA-Public Use
  Company Number: None

PATIENT
  Age: 75 Year
  Sex: Male
  Weight: 99.34 kg

DRUGS (18)
  1. XARELTO [Concomitant]
     Active Substance: RIVAROXABAN
  2. VITAMIN D3 [Concomitant]
     Active Substance: CHOLECALCIFEROL
  3. VITAMIN B COMPLEX [Concomitant]
     Active Substance: CYANOCOBALAMIN\DEXPANTHENOL\NIACINAMIDE\PYRIDOXINE HYDROCHLORIDE\RIBOFLAVIN 5^-PHOSPHATE SODIUM\THIAMINE HYDROCHLORIDE\VITAMIN B COMPLEX
  4. VITAMIN C [Concomitant]
     Active Substance: ASCORBIC ACID
  5. ATENOLOL 100 MG./CHLORTHALIDONE 25 MG. TABS ACTAVIS [Suspect]
     Active Substance: ATENOLOL\CHLORTHALIDONE
     Indication: ESSENTIAL HYPERTENSION
     Route: 048
     Dates: start: 20160623, end: 20160709
  6. MULTIVITAMIN [Concomitant]
     Active Substance: VITAMINS
  7. COQ 10 [Concomitant]
     Active Substance: UBIDECARENONE
  8. MAGNESIUM ASPOROTATE [Concomitant]
  9. NASOCORT [Concomitant]
     Active Substance: BUDESONIDE
  10. PROBIOTIC [Concomitant]
     Active Substance: PROBIOTICS NOS
  11. KING BIO ALLERGY RELIEF SPRAY [Concomitant]
  12. IMMUNE BOOST FOR ALLERGIES [Concomitant]
  13. LISINOPRIL. [Concomitant]
     Active Substance: LISINOPRIL
  14. RUTIN [Concomitant]
     Active Substance: RUTIN
  15. VITAMIN B12 [Concomitant]
     Active Substance: CYANOCOBALAMIN
  16. EPIPEN [Concomitant]
     Active Substance: EPINEPHRINE
  17. VICODIN [Concomitant]
     Active Substance: ACETAMINOPHEN\HYDROCODONE BITARTRATE
  18. BENEFIBER [Concomitant]
     Active Substance: STARCH, WHEAT

REACTIONS (8)
  - Drug ineffective [None]
  - Heart rate increased [None]
  - Fatigue [None]
  - Product substitution issue [None]
  - Arrhythmia [None]
  - Heart rate irregular [None]
  - Asthenia [None]
  - Atrial fibrillation [None]

NARRATIVE: CASE EVENT DATE: 20160709
